FAERS Safety Report 16923430 (Version 3)
Quarter: 2019Q4

REPORT INFORMATION
  Report Type: Spontaneous
  Country: US (occurrence: US)
  Receive Date: 20191016
  Receipt Date: 20191111
  Transmission Date: 20200122
  Serious: Yes (Other)
  Sender: FDA-Public Use
  Company Number: US-PFIZER INC-2019441731

PATIENT
  Age: 59 Year
  Sex: Female
  Weight: 66.72 kg

DRUGS (1)
  1. ATGAM [Suspect]
     Active Substance: EQUINE THYMOCYTE IMMUNE GLOBULIN
     Indication: APLASTIC ANAEMIA
     Dosage: UNK, (10 VIALS FOR A TOTAL OF 2500MG)
     Dates: start: 20191002, end: 20191002

REACTIONS (3)
  - Rash [Recovered/Resolved]
  - Heart rate abnormal [Recovered/Resolved]
  - Tachypnoea [Recovered/Resolved]

NARRATIVE: CASE EVENT DATE: 20191002
